FAERS Safety Report 25073238 (Version 1)
Quarter: 2025Q1

REPORT INFORMATION
  Report Type: Spontaneous
  Country: ES (occurrence: ES)
  Receive Date: 20250313
  Receipt Date: 20250313
  Transmission Date: 20250409
  Serious: Yes (Other)
  Sender: JOHNSON AND JOHNSON
  Company Number: None

PATIENT
  Age: 5 Year
  Sex: Male

DRUGS (1)
  1. DARZALEX [Suspect]
     Active Substance: DARATUMUMAB
     Indication: B-cell type acute leukaemia
     Route: 042
     Dates: start: 20250214, end: 20250214

REACTIONS (2)
  - Acute myopia [Recovered/Resolved]
  - Glaucoma [Recovered/Resolved]

NARRATIVE: CASE EVENT DATE: 20250214
